FAERS Safety Report 7405879-7 (Version None)
Quarter: 2011Q2

REPORT INFORMATION
  Report Type: 
  Country: None (occurrence: None)
  Receive Date: 20110411
  Receipt Date: 20110404
  Transmission Date: 20111010
  Serious: Yes (Hospitalization)
  Sender: FDA-Public Use
  Company Number: FR-ROCHE-769860

PATIENT
  Sex: Female

DRUGS (5)
  1. ACTONEL [Concomitant]
  2. ZITHROMAX [Suspect]
     Indication: ODYNOPHAGIA
     Route: 048
     Dates: start: 20110114, end: 20110116
  3. INIPOMP [Concomitant]
  4. LARIAM [Suspect]
     Indication: MALARIA PROPHYLAXIS
     Route: 048
     Dates: start: 20101201, end: 20110101
  5. TILCOTIL [Concomitant]

REACTIONS (1)
  - PANCYTOPENIA [None]
